FAERS Safety Report 7268194-0 (Version None)
Quarter: 2011Q1

REPORT INFORMATION
  Report Type: 
  Country: None (occurrence: None)
  Receive Date: 20110201
  Receipt Date: 20110113
  Transmission Date: 20110831
  Serious: No
  Sender: FDA-Public Use
  Company Number: US-PFIZER INC-US-WYE-H16846410

PATIENT
  Sex: Female

DRUGS (6)
  1. VITAMIN B [Concomitant]
  2. VITAMIN D [Concomitant]
  3. FISH OIL [Concomitant]
  4. PREMARIN [Suspect]
     Indication: HOT FLUSH
     Dosage: 0.5 MG, UNK
     Route: 048
     Dates: start: 20070101
  5. PREMARIN [Suspect]
     Dosage: 0.9 MG, UNK
     Route: 048
     Dates: start: 20080101
  6. LIPITOR [Suspect]
     Indication: BLOOD CHOLESTEROL INCREASED
     Dosage: UNK
     Route: 048

REACTIONS (3)
  - BLOOD CHOLESTEROL INCREASED [None]
  - PRODUCT QUALITY ISSUE [None]
  - DRUG INEFFECTIVE [None]
